FAERS Safety Report 15558418 (Version 2)
Quarter: 2018Q4

REPORT INFORMATION
  Report Type: Spontaneous
  Country: US (occurrence: US)
  Receive Date: 20181028
  Receipt Date: 20181102
  Transmission Date: 20190205
  Serious: No
  Sender: FDA-Public Use
  Company Number: US-JNJFOC-20180936771

PATIENT
  Sex: Male

DRUGS (1)
  1. TYLENOL EXTRA STRENGTH [Suspect]
     Active Substance: ACETAMINOPHEN
     Indication: PRODUCT USED FOR UNKNOWN INDICATION
     Dosage: 10 TABLETS OF 500 MG EVERY DAY FOR MANY DAYS
     Route: 048

REACTIONS (10)
  - Abdominal pain [Unknown]
  - Blood creatinine increased [Unknown]
  - Headache [Unknown]
  - Malaise [Unknown]
  - Overdose [Unknown]
  - Oliguria [Unknown]
  - Jaundice [Unknown]
  - Nausea [Unknown]
  - Vision blurred [Unknown]
  - Electrolyte imbalance [Unknown]
